FAERS Safety Report 5098539-1 (Version None)
Quarter: 2006Q3

REPORT INFORMATION
  Report Type: 
  Country: None (occurrence: None)
  Receive Date: 20060906
  Receipt Date: 20060223
  Transmission Date: 20061208
  Serious: No
  Sender: FDA-Public Use
  Company Number: US-GLAXOSMITHKLINE-A0594971A

PATIENT
  Age: 44 Year
  Sex: Male

DRUGS (4)
  1. REQUIP [Suspect]
     Indication: RESTLESS LEGS SYNDROME
     Dosage: .5MG PER DAY
     Route: 048
     Dates: start: 20060218
  2. GLUCOSAMINE [Concomitant]
  3. CHONDROITIN [Concomitant]
  4. ALPHA-1 ANTITRYPSIN [Concomitant]

REACTIONS (5)
  - DEPRESSION [None]
  - HEADACHE [None]
  - LETHARGY [None]
  - SOMNOLENCE [None]
  - THINKING ABNORMAL [None]
